FAERS Safety Report 16947553 (Version 2)
Quarter: 2019Q4

REPORT INFORMATION
  Report Type: Spontaneous
  Country: CA (occurrence: CA)
  Receive Date: 20191022
  Receipt Date: 20191030
  Transmission Date: 20200122
  Serious: Yes (Other)
  Sender: FDA-Public Use
  Company Number: CA-TEVA-2019-CA-1125443

PATIENT

DRUGS (4)
  1. ATAZANAVIR. [Suspect]
     Active Substance: ATAZANAVIR
     Dosage: RITONAVIR-BOOSTED ATAZANAVIR
     Route: 064
  2. RITONAVIR. [Suspect]
     Active Substance: RITONAVIR
     Dosage: RITONAVIR-BOOSTED ATAZANAVIR
     Route: 064
  3. TENOFOVIR [Suspect]
     Active Substance: TENOFOVIR
     Route: 064
  4. EMTRICITABINE [Suspect]
     Active Substance: EMTRICITABINE
     Route: 064

REACTIONS (2)
  - Neural tube defect [Unknown]
  - Foetal exposure during pregnancy [Unknown]
